FAERS Safety Report 6934707-9 (Version None)
Quarter: 2010Q3

REPORT INFORMATION
  Report Type: 
  Country: None (occurrence: None)
  Receive Date: 20100820
  Receipt Date: 20100812
  Transmission Date: 20110219
  Serious: Yes (Other)
  Sender: FDA-Public Use
  Company Number: US-GENENTECH-305558

PATIENT
  Age: 23 Year
  Sex: Male

DRUGS (1)
  1. RITUXAN [Suspect]
     Indication: THROMBOTIC THROMBOCYTOPENIC PURPURA
     Dosage: UNK
     Dates: start: 20030501

REACTIONS (3)
  - ENTEROVIRUS INFECTION [None]
  - MOTOR DYSFUNCTION [None]
  - QUADRIPLEGIA [None]
